FAERS Safety Report 13856056 (Version 2)
Quarter: 2017Q3

REPORT INFORMATION
  Report Type: Report from Study
  Country: CA (occurrence: CA)
  Receive Date: 20170810
  Receipt Date: 20170818
  Transmission Date: 20171127
  Serious: Yes (Hospitalization, Other)
  Sender: FDA-Public Use
  Company Number: CA-AMGEN-CANSL2017118575

PATIENT
  Age: 53 Year
  Sex: Male
  Weight: 40.82 kg

DRUGS (3)
  1. METOPROLOL. [Concomitant]
     Active Substance: METOPROLOL
     Dosage: 50 MG, UNK
  2. ASA [Concomitant]
     Active Substance: ASPIRIN
     Dosage: 81 MG, UNK
  3. REPATHA [Suspect]
     Active Substance: EVOLOCUMAB
     Indication: TYPE IIA HYPERLIPIDAEMIA
     Dosage: 140 MG/ML, Q2WK
     Route: 065
     Dates: start: 20170719

REACTIONS (14)
  - Abdominal pain [Unknown]
  - Chest pain [Unknown]
  - Fatigue [Unknown]
  - Haematochezia [Unknown]
  - Abdominal distension [Unknown]
  - Myalgia [Unknown]
  - Lung disorder [Unknown]
  - Surgery [Unknown]
  - Faeces discoloured [Unknown]
  - Gastrooesophageal reflux disease [Unknown]
  - Hospitalisation [Unknown]
  - Pneumonia [Unknown]
  - Faeces hard [Unknown]
  - Abdominal discomfort [Unknown]

NARRATIVE: CASE EVENT DATE: 2017
